FAERS Safety Report 6686009-6 (Version None)
Quarter: 2010Q2

REPORT INFORMATION
  Report Type: 
  Country: None (occurrence: None)
  Receive Date: 20100415
  Receipt Date: 20100415
  Transmission Date: 20101027
  Serious: Yes (Other)
  Sender: FDA-Public Use
  Company Number: None

PATIENT
  Age: 69 Year
  Sex: Male
  Weight: 81.6475 kg

DRUGS (2)
  1. ZITHROMAX [Suspect]
     Indication: BRONCHITIS VIRAL
     Dosage: 500 -2 TABS- ON 4/12 2 STAT PO 250- 1 TABS- ON 4/13 1 AM PO
     Route: 048
     Dates: start: 20100412, end: 20100413
  2. ZITHROMAX [Suspect]
     Indication: SUPERINFECTION
     Dosage: 500 -2 TABS- ON 4/12 2 STAT PO 250- 1 TABS- ON 4/13 1 AM PO
     Route: 048
     Dates: start: 20100412, end: 20100413

REACTIONS (1)
  - STEVENS-JOHNSON SYNDROME [None]
